FAERS Safety Report 13092660 (Version 1)
Quarter: 2017Q1

REPORT INFORMATION
  Report Type: Spontaneous
  Country: US (occurrence: US)
  Receive Date: 20170106
  Receipt Date: 20170106
  Transmission Date: 20170428
  Serious: No
  Sender: FDA-Public Use
  Company Number: US-JNJFOC-20161208245

PATIENT
  Age: 9 Month
  Sex: Male
  Weight: 9.98 kg

DRUGS (1)
  1. INFANTS TYLENOL [Suspect]
     Active Substance: ACETAMINOPHEN
     Indication: TEETHING
     Route: 048
     Dates: start: 20161207, end: 20161207

REACTIONS (2)
  - Drug administration error [Unknown]
  - Incorrect dose administered [Unknown]

NARRATIVE: CASE EVENT DATE: 20161207
